FAERS Safety Report 8573286-X (Version None)
Quarter: 2012Q3

REPORT INFORMATION
  Report Type: 
  Country: None (occurrence: None)
  Receive Date: 20120806
  Receipt Date: 20120727
  Transmission Date: 20120928
  Serious: No
  Sender: FDA-Public Use
  Company Number: US-B.I. PHARMACEUTICALS,INC./RIDGEFIELD-2012-BP-17023BP

PATIENT
  Sex: Male
  Weight: 86 kg

DRUGS (3)
  1. MICARDIS [Suspect]
     Indication: CARDIAC DISORDER
     Dosage: 20 MG
     Route: 048
     Dates: start: 20030101
  2. HYDROCHLOROTHIAZDE TAB [Concomitant]
     Dosage: 12.5 MG
     Dates: start: 20030101
  3. TOPOROL [Concomitant]
     Indication: BLOOD PRESSURE ABNORMAL
     Dosage: 100 MG
     Route: 048
     Dates: start: 20030101

REACTIONS (6)
  - DEHYDRATION [None]
  - FALL [None]
  - HEART RATE DECREASED [None]
  - HYPOTENSION [None]
  - LOSS OF CONSCIOUSNESS [None]
  - HEAD INJURY [None]
